FAERS Safety Report 10057217 (Version 1)
Quarter: 2014Q2

REPORT INFORMATION
  Report Type: Other
  Country: DE (occurrence: DE)
  Receive Date: 20140403
  Receipt Date: 20140403
  Transmission Date: 20141212
  Serious: Yes (Other)
  Sender: FDA-Public Use
  Company Number: DE-BRISTOL-MYERS SQUIBB COMPANY-20584058

PATIENT
  Age: 54 Year
  Sex: Female

DRUGS (3)
  1. CISPLATIN [Suspect]
     Indication: NEOPLASM MALIGNANT
  2. ETOPOSIDE [Suspect]
     Indication: NEOPLASM MALIGNANT
  3. IFOSFAMIDE [Suspect]
     Indication: NEOPLASM MALIGNANT

REACTIONS (2)
  - Neutropenia [Unknown]
  - Sepsis [Unknown]
